FAERS Safety Report 9685227 (Version 1)
Quarter: 2013Q4

REPORT INFORMATION
  Report Type: Spontaneous
  Country: US (occurrence: None)
  Receive Date: 20131112
  Receipt Date: 20131112
  Transmission Date: 20140711
  Serious: Yes (Disabling, Other)
  Sender: FDA-Public Use
  Company Number: None

PATIENT
  Age: 61 Year
  Sex: Female
  Weight: 90.27 kg

DRUGS (2)
  1. DOXYCYCLINE 100 MG [Suspect]
     Indication: SINUSITIS
     Route: 048
     Dates: start: 20111111
  2. OXYGEN CONCENTRATOR [Concomitant]

REACTIONS (3)
  - Loss of consciousness [None]
  - Syncope [None]
  - Brain neoplasm malignant [None]
